FAERS Safety Report 4941872-1 (Version None)
Quarter: 2006Q1

REPORT INFORMATION
  Report Type: 
  Country: None (occurrence: None)
  Receive Date: 20060308
  Receipt Date: 20060222
  Transmission Date: 20060701
  Serious: Yes (Death, Hospitalization)
  Sender: FDA-Public Use
  Company Number: TNZFR200600010

PATIENT
  Age: 50 Year
  Sex: Male
  Weight: 80 kg

DRUGS (2)
  1. INNOHEP [Suspect]
     Indication: THROMBOSIS PROPHYLAXIS
     Dosage: 4500 IU (4500 IU, ONCE DAILY), SUBCUTANEOUS
     Route: 058
     Dates: start: 20051217
  2. DI-ANTALVIC (APOREX) [Concomitant]

REACTIONS (1)
  - PULMONARY EMBOLISM [None]
